FAERS Safety Report 10053063 (Version 3)
Quarter: 2017Q4

REPORT INFORMATION
  Report Type: Spontaneous
  Country: GB (occurrence: GB)
  Receive Date: 20140402
  Receipt Date: 20171227
  Transmission Date: 20180320
  Serious: Yes (Other)
  Sender: FDA-Public Use
  Company Number: GB-TEVA-471815ISR

PATIENT
  Sex: Female

DRUGS (4)
  1. METFORMIN [Suspect]
     Active Substance: METFORMIN HYDROCHLORIDE
     Indication: DIABETES MELLITUS
     Route: 065
  2. APIXABAN [Interacting]
     Active Substance: APIXABAN
     Indication: HIP ARTHROPLASTY
     Route: 065
  3. APIXABAN [Interacting]
     Active Substance: APIXABAN
     Indication: KNEE ARTHROPLASTY
  4. IBUPROFEN. [Suspect]
     Active Substance: IBUPROFEN
     Indication: PRODUCT USED FOR UNKNOWN INDICATION
     Route: 065

REACTIONS (3)
  - Drug interaction [Unknown]
  - Creatinine renal clearance abnormal [Unknown]
  - Renal failure [Unknown]
